FAERS Safety Report 18690509 (Version 3)
Quarter: 2021Q2

REPORT INFORMATION
  Report Type: Spontaneous
  Country: CA (occurrence: CA)
  Receive Date: 20201231
  Receipt Date: 20210409
  Transmission Date: 20210717
  Serious: Yes (Hospitalization)
  Sender: FDA-Public Use
  Company Number: CA-ROCHE-2741823

PATIENT
  Sex: Male

DRUGS (26)
  1. HUMIRA [Suspect]
     Active Substance: ADALIMUMAB
     Route: 065
  2. ORENCIA [Suspect]
     Active Substance: ABATACEPT
     Indication: PRODUCT USED FOR UNKNOWN INDICATION
     Route: 042
  3. PLAQUENIL [Suspect]
     Active Substance: HYDROXYCHLOROQUINE SULFATE
     Indication: PRODUCT USED FOR UNKNOWN INDICATION
     Route: 065
  4. REMICADE [Suspect]
     Active Substance: INFLIXIMAB
     Indication: PRODUCT USED FOR UNKNOWN INDICATION
     Route: 042
  5. ENBREL [Suspect]
     Active Substance: ETANERCEPT
     Indication: PRODUCT USED FOR UNKNOWN INDICATION
     Route: 058
  6. ENBREL [Suspect]
     Active Substance: ETANERCEPT
     Dosage: THERAPY DURATION: 152.0 DAYS
     Route: 065
  7. HUMIRA [Suspect]
     Active Substance: ADALIMUMAB
     Route: 058
  8. ORENCIA [Suspect]
     Active Substance: ABATACEPT
     Route: 065
  9. HUMIRA [Suspect]
     Active Substance: ADALIMUMAB
     Dosage: THERAPY DURATION: 122.0 DAYS
     Route: 058
  10. HYDROXYCHLOROQUINE [Suspect]
     Active Substance: HYDROXYCHLOROQUINE
     Route: 065
  11. RITUXIMAB. [Suspect]
     Active Substance: RITUXIMAB
     Indication: PRODUCT USED FOR UNKNOWN INDICATION
     Route: 065
  12. HUMIRA [Suspect]
     Active Substance: ADALIMUMAB
     Indication: PRODUCT USED FOR UNKNOWN INDICATION
     Route: 058
  13. METHOTREXATE. [Suspect]
     Active Substance: METHOTREXATE
     Indication: PRODUCT USED FOR UNKNOWN INDICATION
     Route: 058
  14. ORENCIA [Suspect]
     Active Substance: ABATACEPT
     Route: 042
  15. PLAQUENIL [Suspect]
     Active Substance: HYDROXYCHLOROQUINE SULFATE
     Route: 065
  16. HYDROXYCHLOROQUINE SULFATE. [Suspect]
     Active Substance: HYDROXYCHLOROQUINE SULFATE
     Indication: PRODUCT USED FOR UNKNOWN INDICATION
     Route: 048
  17. HYDROXYCHLOROQUINE [Suspect]
     Active Substance: HYDROXYCHLOROQUINE
     Indication: PRODUCT USED FOR UNKNOWN INDICATION
     Route: 048
  18. RITUXIMAB. [Suspect]
     Active Substance: RITUXIMAB
     Route: 065
  19. HYDROXYCHLOROQUINE SULFATE. [Suspect]
     Active Substance: HYDROXYCHLOROQUINE SULFATE
     Route: 065
  20. METHOTREXATE. [Suspect]
     Active Substance: METHOTREXATE
     Route: 065
  21. REMICADE [Suspect]
     Active Substance: INFLIXIMAB
     Route: 065
  22. RITUXIMAB. [Suspect]
     Active Substance: RITUXIMAB
     Indication: PRODUCT USED FOR UNKNOWN INDICATION
     Route: 042
  23. HYDROXYCHLOROQUINE SULFATE. [Suspect]
     Active Substance: HYDROXYCHLOROQUINE SULFATE
     Indication: PRODUCT USED FOR UNKNOWN INDICATION
     Route: 065
  24. METHOTREXATE. [Suspect]
     Active Substance: METHOTREXATE
     Dosage: THERAPY DURATION: 580.0 DAYS
     Route: 058
  25. HYDROXYCHLOROQUINE [Suspect]
     Active Substance: HYDROXYCHLOROQUINE
     Route: 065
  26. HYDROXYCHLOROQUINE [Suspect]
     Active Substance: HYDROXYCHLOROQUINE
     Route: 048

REACTIONS (10)
  - White blood cell count decreased [Unknown]
  - Contraindicated product administered [Unknown]
  - Product use issue [Unknown]
  - Drug intolerance [Unknown]
  - Neutropenia [Unknown]
  - Synovitis [Unknown]
  - Osteoarthritis [Unknown]
  - Drug ineffective [Unknown]
  - Off label use [Unknown]
  - Nausea [Unknown]
